FAERS Safety Report 10721858 (Version 1)
Quarter: 2015Q1

REPORT INFORMATION
  Report Type: Spontaneous
  Country: GR (occurrence: GR)
  Receive Date: 20150119
  Receipt Date: 20150119
  Transmission Date: 20150721
  Serious: Yes (Other)
  Sender: FDA-Public Use
  Company Number: GR-BAXTER-2014BAX074327

PATIENT
  Age: 60 Year
  Sex: Male
  Weight: 80 kg

DRUGS (13)
  1. RENVELA [Concomitant]
     Active Substance: SEVELAMER CARBONATE
     Indication: RENAL FAILURE
     Route: 065
  2. LEXOTANIL [Concomitant]
     Active Substance: BROMAZEPAM
     Indication: RENAL FAILURE
     Route: 065
  3. CARVEDILEN [Concomitant]
     Indication: RENAL FAILURE
     Route: 065
  4. TITRALAC [Concomitant]
     Active Substance: CALCIUM CARBONATE
     Indication: RENAL FAILURE
     Route: 065
  5. FOSRENOL [Concomitant]
     Active Substance: LANTHANUM CARBONATE
     Indication: RENAL FAILURE
     Route: 065
  6. EXTRANEAL [Suspect]
     Active Substance: CALCIUM CHLORIDE\ICODEXTRIN\MAGNESIUM CHLORIDE\SODIUM CHLORIDE\SODIUM LACTATE
     Indication: RENAL FAILURE
     Route: 033
     Dates: start: 201108, end: 201409
  7. COVERAM [Concomitant]
     Active Substance: AMLODIPINE\PERINDOPRIL
     Indication: RENAL FAILURE
     Route: 065
  8. OMACOR [Concomitant]
     Active Substance: OMEGA-3-ACID ETHYL ESTERS
     Indication: RENAL FAILURE
     Route: 065
  9. ZYLORIC [Concomitant]
     Active Substance: ALLOPURINOL
     Indication: RENAL FAILURE
     Route: 065
  10. EXTRANEAL [Suspect]
     Active Substance: CALCIUM CHLORIDE\ICODEXTRIN\MAGNESIUM CHLORIDE\SODIUM CHLORIDE\SODIUM LACTATE
     Indication: PERITONEAL DIALYSIS
     Route: 033
     Dates: start: 201501
  11. STILNOX [Concomitant]
     Active Substance: ZOLPIDEM TARTRATE
     Indication: RENAL FAILURE
     Route: 065
  12. MIMPARA [Concomitant]
     Active Substance: CINACALCET HYDROCHLORIDE
     Indication: RENAL FAILURE
     Route: 065
  13. KAYEXALATE [Concomitant]
     Active Substance: SODIUM POLYSTYRENE SULFONATE
     Indication: RENAL FAILURE
     Route: 065

REACTIONS (2)
  - Disease susceptibility [Unknown]
  - Hernia [Recovered/Resolved]

NARRATIVE: CASE EVENT DATE: 201409
